FAERS Safety Report 9219634 (Version 1)
Quarter: 2013Q2

REPORT INFORMATION
  Report Type: Spontaneous
  Country: DE (occurrence: DE)
  Receive Date: 20130409
  Receipt Date: 20130409
  Transmission Date: 20140414
  Serious: Yes (Life-Threatening)
  Sender: FDA-Public Use
  Company Number: DE-ROCHE-1205993

PATIENT
  Age: 71 Year
  Sex: Male
  Weight: 80 kg

DRUGS (2)
  1. ACTILYSE [Suspect]
     Indication: CEREBRAL ARTERY OCCLUSION
     Dosage: THERAPY DURATION WAS MORE THAN 1 MINUTE
     Route: 040
     Dates: start: 20110308
  2. ACTILYSE [Suspect]
     Dosage: BOLUS, THERAPY DURATION WAS MORE THAN 1 MINUTE
     Route: 013
     Dates: start: 20110308

REACTIONS (1)
  - Cerebral artery occlusion [Unknown]
